FAERS Safety Report 8380475-6 (Version None)
Quarter: 2012Q2

REPORT INFORMATION
  Report Type: 
  Country: None (occurrence: None)
  Receive Date: 20120523
  Receipt Date: 20120514
  Transmission Date: 20120825
  Serious: Yes (Other)
  Sender: FDA-Public Use
  Company Number: JP-GLAXOSMITHKLINE-B0783758A

PATIENT
  Sex: Male

DRUGS (7)
  1. LOXONIN [Concomitant]
     Indication: CONSTIPATION
     Route: 048
  2. ALFAROL [Concomitant]
     Indication: HYPOCALCAEMIA
     Dosage: .25MG PER DAY
     Route: 048
  3. CLONAZEPAM [Concomitant]
     Indication: HICCUPS
     Dosage: .5MG PER DAY
     Route: 048
  4. VALTREX [Suspect]
     Indication: HERPES ZOSTER
     Dosage: 1500MG PER DAY
     Route: 048
     Dates: start: 20120219, end: 20120220
  5. RABEPRAZOLE SODIUM [Concomitant]
     Dosage: 10MG PER DAY
     Route: 048
  6. PRECIPITATED CALCIUM CARBONATE [Concomitant]
     Indication: HYPOCALCAEMIA
     Dosage: 1500MG PER DAY
     Route: 048
  7. SENNARIDE [Concomitant]
     Indication: CONSTIPATION
     Dosage: 60MG PER DAY
     Route: 048

REACTIONS (11)
  - COORDINATION ABNORMAL [None]
  - CRYING [None]
  - THIRST [None]
  - ALTERED STATE OF CONSCIOUSNESS [None]
  - FEELING OF DESPAIR [None]
  - SUICIDAL IDEATION [None]
  - RESTLESSNESS [None]
  - DYSARTHRIA [None]
  - OVERDOSE [None]
  - LOGORRHOEA [None]
  - DYSPRAXIA [None]
